FAERS Safety Report 10399001 (Version 1)
Quarter: 2014Q3

REPORT INFORMATION
  Report Type: Report from Study
  Country: US (occurrence: US)
  Receive Date: 20140821
  Receipt Date: 20140821
  Transmission Date: 20150326
  Serious: Yes (Hospitalization, Other)
  Sender: FDA-Public Use
  Company Number: US-ABBVIE-14P-163-1271882-00

PATIENT
  Age: 42 Year
  Sex: Female

DRUGS (15)
  1. HUMIRA [Suspect]
     Active Substance: ADALIMUMAB
     Dosage: STARTING DAY 22
     Dates: start: 2012
  2. CIPRO [Suspect]
     Active Substance: CIPROFLOXACIN HYDROCHLORIDE
     Indication: ERYTHEMA
  3. CARAFATE [Suspect]
     Active Substance: SUCRALFATE
     Indication: GASTRIC ULCER
     Dates: start: 201402
  4. AMOXICILLIN. [Suspect]
     Active Substance: AMOXICILLIN
     Indication: GROIN PAIN
  5. AMOXICILLIN. [Suspect]
     Active Substance: AMOXICILLIN
     Indication: ERYTHEMA
  6. HUMIRA [Suspect]
     Active Substance: ADALIMUMAB
     Indication: PSORIASIS
     Dosage: DAY ONE
     Dates: start: 201201, end: 201201
  7. AUGMENTIN [Suspect]
     Active Substance: AMOXICILLIN\CLAVULANATE POTASSIUM
     Indication: GROIN PAIN
  8. AUGMENTIN [Suspect]
     Active Substance: AMOXICILLIN\CLAVULANATE POTASSIUM
     Indication: ERYTHEMA
  9. CIPRO [Suspect]
     Active Substance: CIPROFLOXACIN HYDROCHLORIDE
     Indication: LOCAL SWELLING
     Dates: start: 2013
  10. CIPRO [Suspect]
     Active Substance: CIPROFLOXACIN HYDROCHLORIDE
     Indication: GROIN PAIN
  11. UNKNOWN MEDICATION [Concomitant]
     Active Substance: UNSPECIFIED INGREDIENT
     Indication: PRODUCT USED FOR UNKNOWN INDICATION
  12. AUGMENTIN [Suspect]
     Active Substance: AMOXICILLIN\CLAVULANATE POTASSIUM
     Indication: LOCAL SWELLING
     Dates: start: 2013
  13. AMOXICILLIN. [Suspect]
     Active Substance: AMOXICILLIN
     Indication: LOCAL SWELLING
     Dates: start: 2013
  14. LISINOPRIL. [Concomitant]
     Active Substance: LISINOPRIL
     Indication: HYPERTENSION
  15. HUMIRA [Suspect]
     Active Substance: ADALIMUMAB
     Dosage: DAY EIGHT
     Dates: start: 2012, end: 2012

REACTIONS (10)
  - Gastrooesophageal reflux disease [Recovered/Resolved]
  - Cyst [Recovered/Resolved]
  - Device issue [Unknown]
  - Drug ineffective [Unknown]
  - Local swelling [Recovered/Resolved]
  - Groin pain [Recovered/Resolved]
  - Erythema [Recovered/Resolved]
  - Injection site pain [Not Recovered/Not Resolved]
  - Lip swelling [Unknown]
  - Gastric ulcer [Unknown]

NARRATIVE: CASE EVENT DATE: 201201
